FAERS Safety Report 13671008 (Version 1)
Quarter: 2017Q2

REPORT INFORMATION
  Report Type: Spontaneous
  Country: US (occurrence: US)
  Receive Date: 20170620
  Receipt Date: 20170620
  Transmission Date: 20170830
  Serious: No
  Sender: FDA-Public Use
  Company Number: US-ROCHE-1231425

PATIENT
  Sex: Female

DRUGS (1)
  1. XELODA [Suspect]
     Active Substance: CAPECITABINE
     Indication: COLON CANCER
     Dosage: 1 WEEK ON, 1WEEK OFF
     Route: 048
     Dates: start: 20130322

REACTIONS (8)
  - Myalgia [Unknown]
  - Trismus [Unknown]
  - Weight decreased [Unknown]
  - Urinary tract infection [Unknown]
  - Swollen tongue [Unknown]
  - Decreased appetite [Unknown]
  - Dyskinesia [Unknown]
  - Pharyngeal oedema [Unknown]
